FAERS Safety Report 23324342 (Version 3)
Quarter: 2025Q3

REPORT INFORMATION
  Report Type: Spontaneous
  Country: US (occurrence: US)
  Receive Date: 20231221
  Receipt Date: 20250919
  Transmission Date: 20251020
  Serious: No
  Sender: SANOFI AVENTIS
  Company Number: US-SA-SAC20231214000774

PATIENT
  Age: 80 Year
  Sex: Female
  Weight: 75.737 kg

DRUGS (17)
  1. DUPIXENT [Suspect]
     Active Substance: DUPILUMAB
     Indication: Dermatitis atopic
     Dosage: 300 MG, QOW
     Route: 058
     Dates: start: 202201
  2. DUPIXENT [Suspect]
     Active Substance: DUPILUMAB
     Indication: Asthma
  3. CYANOCOBALAMIN [Concomitant]
     Active Substance: CYANOCOBALAMIN
  4. VITAMIN D2 [Concomitant]
     Active Substance: ERGOCALCIFEROL
  5. TRELEGY ELLIPTA [Concomitant]
     Active Substance: FLUTICASONE FUROATE\UMECLIDINIUM BROMIDE\VILANTEROL TRIFENATATE
  6. BYSTOLIC [Concomitant]
     Active Substance: NEBIVOLOL HYDROCHLORIDE
  7. TRAMADOL HCL [Concomitant]
     Active Substance: TRAMADOL HYDROCHLORIDE
  8. TEMAZEPAM [Concomitant]
     Active Substance: TEMAZEPAM
  9. NORVASC [Concomitant]
     Active Substance: AMLODIPINE BESYLATE
  10. PANTOPRAZOLE SODIUM [Concomitant]
     Active Substance: PANTOPRAZOLE SODIUM
  11. LOVASTATIN [Concomitant]
     Active Substance: LOVASTATIN
  12. SYNTHROID [Concomitant]
     Active Substance: LEVOTHYROXINE SODIUM
  13. EFFEXOR XR [Concomitant]
     Active Substance: VENLAFAXINE HYDROCHLORIDE
  14. AIRBORNE [Concomitant]
     Active Substance: HERBALS\MINERALS\VITAMINS
  15. ASPIRIN [Concomitant]
     Active Substance: ASPIRIN
  16. DOCONEXENT\ICOSAPENT [Concomitant]
     Active Substance: DOCONEXENT\ICOSAPENT
  17. CALCIUM [Concomitant]
     Active Substance: CALCIUM

REACTIONS (8)
  - Trigger finger [Unknown]
  - Onychoclasis [Not Recovered/Not Resolved]
  - Back pain [Not Recovered/Not Resolved]
  - Erythema [Not Recovered/Not Resolved]
  - Rash [Not Recovered/Not Resolved]
  - Arthralgia [Not Recovered/Not Resolved]
  - Mobility decreased [Unknown]
  - Gait disturbance [Unknown]

NARRATIVE: CASE EVENT DATE: 20250101
